FAERS Safety Report 6087709-1 (Version None)
Quarter: 2009Q1

REPORT INFORMATION
  Report Type: 
  Country: None (occurrence: None)
  Receive Date: 20090223
  Receipt Date: 20090210
  Transmission Date: 20090719
  Serious: Yes (Hospitalization, Disabling)
  Sender: FDA-Public Use
  Company Number: FR-ROCHE-595305

PATIENT
  Age: 70 Year
  Sex: Male
  Weight: 60 kg

DRUGS (23)
  1. CELLCEPT [Suspect]
     Indication: PROPHYLAXIS AGAINST TRANSPLANT REJECTION
     Route: 048
     Dates: start: 20001012
  2. CELLCEPT [Suspect]
     Route: 048
     Dates: start: 20070924
  3. CELLCEPT [Suspect]
     Dosage: DRUG RE-STARTED WITH LOWER DOSE ASND STOPPED DEFINITIVELY
     Route: 048
  4. CELLCEPT [Suspect]
     Route: 048
     Dates: start: 20080130
  5. CELLCEPT [Suspect]
     Route: 048
     Dates: start: 20080221, end: 20080428
  6. CELLCEPT [Suspect]
     Route: 048
     Dates: start: 20080630, end: 20080810
  7. CELLCEPT [Suspect]
     Route: 048
     Dates: start: 20080904, end: 20081230
  8. NEORAL [Concomitant]
     Dosage: DOSE: 75 DOSES BI.
     Route: 048
     Dates: start: 20001012, end: 20080308
  9. SOLUPRED [Concomitant]
     Dosage: DOSE: 30 DOSES Q.
     Route: 048
     Dates: start: 20001012
  10. SOLUPRED [Concomitant]
     Route: 048
     Dates: start: 20080130
  11. SOLUPRED [Concomitant]
     Dosage: DIMIUTION OF 10 MG CORTICOTHERAPY EVERY 10 DAYS UNTIL 40MG/D; THEN DIMINUTION OF 5MG/D UNTIL 30MG/D.
     Route: 048
     Dates: start: 20080320
  12. SOLUPRED [Concomitant]
     Route: 048
  13. SOLUPRED [Concomitant]
     Route: 048
  14. SOLUPRED [Concomitant]
     Route: 048
  15. SOLUPRED [Concomitant]
     Route: 048
     Dates: start: 20080821
  16. SOLUPRED [Concomitant]
     Route: 048
     Dates: start: 20080930
  17. SOLUPRED [Concomitant]
     Route: 048
     Dates: start: 20081229
  18. PROGRAF [Concomitant]
     Dosage: DOSE: 1.5 DOSES.
     Route: 048
     Dates: start: 20060308
  19. PROGRAF [Concomitant]
     Route: 048
     Dates: start: 20080130
  20. PROGRAF [Concomitant]
     Route: 048
     Dates: start: 20080221
  21. TAHOR [Concomitant]
     Dosage: DOSE: 10 DOSES Q.
     Route: 048
     Dates: start: 20001127
  22. NEXIUM [Concomitant]
     Dosage: DOSE: 20 DOSES Q.
     Route: 048
     Dates: start: 20080916
  23. CHRONADALATE [Concomitant]
     Dosage: DOSE: 30 DOSES Q.
     Route: 048
     Dates: start: 20001012

REACTIONS (4)
  - ARTHRALGIA [None]
  - ARTHROPATHY [None]
  - INFLAMMATION [None]
  - PYREXIA [None]
